FAERS Safety Report 20543221 (Version 1)
Quarter: 2022Q1

REPORT INFORMATION
  Report Type: Spontaneous
  Country: US (occurrence: None)
  Receive Date: 20220302
  Receipt Date: 20220302
  Transmission Date: 20220423
  Serious: Yes (Other)
  Sender: FDA-Public Use
  Company Number: US-ROCHE-2851469

PATIENT
  Age: 9 Year
  Sex: Female

DRUGS (2)
  1. NUTROPIN [Suspect]
     Active Substance: SOMATROPIN
     Indication: Hypopituitarism
     Dosage: STRENGTH= 5 MG/2 ML
     Route: 058
     Dates: start: 201510
  2. NUTROPIN [Suspect]
     Active Substance: SOMATROPIN

REACTIONS (2)
  - Anaphylactic reaction [Unknown]
  - Insomnia [Unknown]

NARRATIVE: CASE EVENT DATE: 20210603
